FAERS Safety Report 9761390 (Version 1)
Quarter: 2013Q4

REPORT INFORMATION
  Report Type: Report from Study
  Country: US (occurrence: US)
  Receive Date: 20131216
  Receipt Date: 20131216
  Transmission Date: 20140711
  Serious: Yes (Other)
  Sender: FDA-Public Use
  Company Number: US-BAXTER-2013BAX049645

PATIENT
  Sex: Male

DRUGS (2)
  1. GAMMAGARD LIQUID [Suspect]
     Indication: COMPLICATIONS OF TRANSPLANT SURGERY
     Route: 042
  2. GAMMAGARD LIQUID [Suspect]
     Indication: COMBINED IMMUNODEFICIENCY

REACTIONS (1)
  - Hepatic amoebiasis [Unknown]
